FAERS Safety Report 5715521-9 (Version None)
Quarter: 2008Q2

REPORT INFORMATION
  Report Type: 
  Country: None (occurrence: None)
  Receive Date: 20080422
  Receipt Date: 20080411
  Transmission Date: 20081010
  Serious: Yes (Hospitalization)
  Sender: FDA-Public Use
  Company Number: 2008BI004073

PATIENT
  Age: 51 Year
  Sex: Male

DRUGS (1)
  1. AVONEX [Suspect]
     Indication: MULTIPLE SCLEROSIS
     Dosage: 30 UG;QW; IM
     Route: 030
     Dates: start: 20031217, end: 20071228

REACTIONS (7)
  - ABDOMINAL PAIN [None]
  - BONE PAIN [None]
  - COLORECTAL CANCER METASTATIC [None]
  - HEPATIC PAIN [None]
  - METASTASES TO ADRENALS [None]
  - METASTASES TO LIVER [None]
  - METASTASES TO LUNG [None]
